FAERS Safety Report 7385453-1 (Version None)
Quarter: 2011Q1

REPORT INFORMATION
  Report Type: 
  Country: None (occurrence: None)
  Receive Date: 20110330
  Receipt Date: 20101102
  Transmission Date: 20110831
  Serious: Yes (Other)
  Sender: FDA-Public Use
  Company Number: US-AMGEN-USASP2010000917

PATIENT
  Age: 21 Year
  Sex: Male

DRUGS (3)
  1. RITUXIMAB [Concomitant]
     Dates: end: 20101019
  2. NPLATE [Suspect]
     Indication: IDIOPATHIC THROMBOCYTOPENIC PURPURA
  3. VINCRISTINE [Concomitant]
     Dosage: UNK
     Dates: start: 20101019

REACTIONS (1)
  - DRUG INEFFECTIVE [None]
